FAERS Safety Report 5324447-4 (Version None)
Quarter: 2007Q2

REPORT INFORMATION
  Report Type: 
  Country: None (occurrence: None)
  Receive Date: 20070508
  Receipt Date: 20070423
  Transmission Date: 20071010
  Serious: Yes (Hospitalization)
  Sender: FDA-Public Use
  Company Number: 2007EU000877

PATIENT
  Age: 32 Year
  Sex: Male
  Weight: 70 kg

DRUGS (1)
  1. VESICARE [Suspect]
     Indication: NEUROGENIC BLADDER
     Dosage: 10 MG, ORAL
     Route: 048

REACTIONS (2)
  - CATHETER RELATED COMPLICATION [None]
  - URETHRAL OBSTRUCTION [None]
